FAERS Safety Report 12607793 (Version 3)
Quarter: 2017Q1

REPORT INFORMATION
  Report Type: Other
  Country: JP (occurrence: JP)
  Receive Date: 20160729
  Receipt Date: 20170220
  Transmission Date: 20170428
  Serious: Yes (Hospitalization, Other)
  Sender: FDA-Public Use
  Company Number: JP-WARNER CHILCOTT, LLC-1055699

PATIENT
  Age: 73 Year
  Sex: Female

DRUGS (6)
  1. CAMOSTAT MESILATE [Concomitant]
     Active Substance: CAMOSTAT MESYLATE
  2. BENET [Suspect]
     Active Substance: RISEDRONATE SODIUM
     Indication: OSTEOPOROSIS
     Route: 048
     Dates: end: 20130605
  3. MAGLAX [Concomitant]
     Active Substance: MAGNESIUM OXIDE
  4. FOIPAN [Concomitant]
     Active Substance: CAMOSTAT MESYLATE
  5. METHYCOBAL [Concomitant]
     Active Substance: METHYLCOBALAMIN
  6. WARFARIN POTASSIUM [Concomitant]
     Active Substance: WARFARIN POTASSIUM

REACTIONS (21)
  - Dyspepsia [Unknown]
  - Weight decreased [Unknown]
  - Dry mouth [Unknown]
  - Hypoalbuminaemia [Recovering/Resolving]
  - Chest discomfort [Unknown]
  - Impaired healing [Recovering/Resolving]
  - Oedema [Recovering/Resolving]
  - Decreased appetite [Recovering/Resolving]
  - Contusion [Recovering/Resolving]
  - Skin ulcer [Recovering/Resolving]
  - Activities of daily living impaired [Unknown]
  - Occult blood positive [Unknown]
  - Limb discomfort [Recovering/Resolving]
  - Tenderness [Unknown]
  - Tongue dry [Unknown]
  - Haemorrhoids [Unknown]
  - Cachexia [Unknown]
  - Pleural effusion [Recovering/Resolving]
  - Oesophagitis [Recovered/Resolved]
  - Malnutrition [Recovering/Resolving]
  - Blood urea increased [Unknown]

NARRATIVE: CASE EVENT DATE: 20130601
